FAERS Safety Report 6063464-6 (Version None)
Quarter: 2009Q1

REPORT INFORMATION
  Report Type: 
  Country: None (occurrence: None)
  Receive Date: 20090203
  Receipt Date: 20090130
  Transmission Date: 20090719
  Serious: No
  Sender: FDA-Public Use
  Company Number: US-B.I. PHARMACEUTICALS,INC./RIDGEFIELD-2007-BP-07180BP

PATIENT
  Age: 79 Year
  Sex: Male

DRUGS (8)
  1. FLOMAX [Suspect]
     Indication: BENIGN PROSTATIC HYPERPLASIA
     Dosage: .4MG
     Route: 048
  2. FLOMAX [Suspect]
     Indication: DYSURIA
  3. NOVOLIN 70/30 [Concomitant]
     Indication: DIABETES MELLITUS
     Route: 058
  4. STOOL SOFTENERS [Concomitant]
  5. TRAMADOL HCL [Concomitant]
  6. WATER PILL [Concomitant]
  7. INTESTINAL FORMULA #1 [Concomitant]
  8. HERBS/VITAMINS [Concomitant]

REACTIONS (6)
  - BACK PAIN [None]
  - CONSTIPATION [None]
  - INSOMNIA [None]
  - MUSCULAR WEAKNESS [None]
  - MYALGIA [None]
  - OROPHARYNGEAL PAIN [None]
